FAERS Safety Report 12862820 (Version 1)
Quarter: 2016Q4

REPORT INFORMATION
  Report Type: Spontaneous
  Country: US (occurrence: US)
  Receive Date: 20161019
  Receipt Date: 20161019
  Transmission Date: 20170207
  Serious: Yes (Other)
  Sender: FDA-Public Use
  Company Number: US-JNJFOC-20110907492

PATIENT
  Sex: Female

DRUGS (1)
  1. TOPAMAX [Suspect]
     Active Substance: TOPIRAMATE
     Indication: DEPRESSION
     Route: 048
     Dates: start: 2002

REACTIONS (4)
  - Memory impairment [Recovering/Resolving]
  - Persistent depressive disorder [Recovering/Resolving]
  - Cognitive disorder [Recovering/Resolving]
  - Weight decreased [Unknown]
